FAERS Safety Report 12590793 (Version 1)
Quarter: 2016Q3

REPORT INFORMATION
  Report Type: Spontaneous
  Country: US (occurrence: US)
  Receive Date: 20160726
  Receipt Date: 20160726
  Transmission Date: 20161109
  Serious: No
  Sender: FDA-Public Use
  Company Number: US-TEVA-679041ACC

PATIENT
  Age: 24 Year
  Sex: Female
  Weight: 59.93 kg

DRUGS (2)
  1. PARAGARD T 380A [Suspect]
     Active Substance: COPPER
     Indication: CONTRACEPTION
     Dates: start: 20160712, end: 20160713
  2. PRENATAL VITAMIN WITH FOLIC ACID [Concomitant]
     Indication: BREAST FEEDING

REACTIONS (10)
  - Adverse event [Unknown]
  - Pyrexia [Unknown]
  - Vaginal haemorrhage [Unknown]
  - Headache [Recovered/Resolved]
  - Exposure during breast feeding [Unknown]
  - Vomiting [Unknown]
  - Abdominal pain lower [Unknown]
  - Chills [Unknown]
  - Nausea [Unknown]
  - Device expulsion [Recovered/Resolved]

NARRATIVE: CASE EVENT DATE: 20160712
